FAERS Safety Report 5949149-2 (Version None)
Quarter: 2008Q4

REPORT INFORMATION
  Report Type: 
  Country: None (occurrence: None)
  Receive Date: 20081111
  Receipt Date: 20081110
  Transmission Date: 20090506
  Serious: Yes (Hospitalization)
  Sender: FDA-Public Use
  Company Number: US-ROXANE LABORATORIES, INC.-2008-RO-00209RO

PATIENT

DRUGS (1)
  1. BALSALAZIDE DISODIUM [Suspect]

REACTIONS (1)
  - HOSPITALISATION [None]
